FAERS Safety Report 8642850 (Version 3)
Quarter: 2012Q4

REPORT INFORMATION
  Report Type: 
  Country: RU (occurrence: RU)
  Receive Date: 20120629
  Receipt Date: 20121024
  Transmission Date: 20130627
  Serious: Yes (Other)
  Sender: FDA-Public Use
  Company Number: PHHY2012RU054962

PATIENT
  Sex: Female

DRUGS (3)
  1. ACLASTA [Suspect]
     Indication: FEMORAL NECK FRACTURE
     Dosage: 15 min duration
     Route: 042
  2. SODIUM CHLORIDE SOLUTION [Concomitant]
     Dosage: 500 ml, UNK
  3. SODIUM CHLORIDE SOLUTION [Concomitant]
     Dosage: 300 ml, UNK

REACTIONS (7)
  - Abdominal tenderness [Recovered/Resolved]
  - Chest pain [Recovered/Resolved]
  - Abdominal pain upper [Recovered/Resolved]
  - Abdominal pain lower [Recovered/Resolved]
  - Back pain [Recovered/Resolved]
  - Dyspnoea [Recovered/Resolved]
  - Body temperature increased [Recovered/Resolved]
